FAERS Safety Report 8960702 (Version 1)
Quarter: 2012Q4

REPORT INFORMATION
  Report Type: 
  Country: US (occurrence: US)
  Receive Date: 20121212
  Receipt Date: 20121212
  Transmission Date: 20130627
  Serious: Yes (Other)
  Sender: FDA-Public Use
  Company Number: CHPA2012US024671

PATIENT
  Sex: Female

DRUGS (2)
  1. MYOFLEX ANALGESIC CREME [Suspect]
     Indication: UPPER LIMB FRACTURE
     Dosage: Unk, Unk
     Route: 061
  2. ASPERCREME [Concomitant]
     Dosage: Unk, Unk

REACTIONS (3)
  - Upper limb fracture [Recovered/Resolved]
  - Therapeutic response unexpected [Unknown]
  - Off label use [Unknown]
